FAERS Safety Report 10076749 (Version 1)
Quarter: 2014Q2

REPORT INFORMATION
  Report Type: Spontaneous
  Country: LB (occurrence: LB)
  Receive Date: 20140414
  Receipt Date: 20140414
  Transmission Date: 20141212
  Serious: Yes (Death, Other)
  Sender: FDA-Public Use
  Company Number: LB-B.I. PHARMACEUTICALS,INC./RIDGEFIELD-2014-BI-16674AE

PATIENT
  Age: 85 Year
  Sex: Female

DRUGS (9)
  1. SPIRIVA [Suspect]
     Indication: CHRONIC OBSTRUCTIVE PULMONARY DISEASE
     Dosage: 18 MCG
     Route: 055
     Dates: start: 20130512
  2. CORDARONE [Concomitant]
     Indication: MYOCARDIAL INFARCTION
     Dosage: 400 MG
     Route: 048
     Dates: end: 20140331
  3. CORDARONE [Concomitant]
     Indication: CARDIAC OPERATION
  4. ATACAND [Concomitant]
     Indication: MYOCARDIAL INFARCTION
     Dosage: 16 MG
     Route: 048
     Dates: end: 20140331
  5. ATACAND [Concomitant]
     Indication: CARDIAC OPERATION
  6. ASPICOR [Concomitant]
     Indication: MYOCARDIAL INFARCTION
     Dosage: 81 MG
     Route: 048
     Dates: end: 20140331
  7. ASPICOR [Concomitant]
     Indication: CARDIAC OPERATION
  8. CORVASAL [Concomitant]
     Indication: MYOCARDIAL INFARCTION
     Dosage: 4 MG
     Route: 048
     Dates: end: 20140331
  9. CORVASAL [Concomitant]
     Indication: CARDIAC OPERATION

REACTIONS (1)
  - Cardiac arrest [Fatal]
